FAERS Safety Report 18576669 (Version 1)
Quarter: 2020Q4

REPORT INFORMATION
  Report Type: Spontaneous
  Country: AU (occurrence: AU)
  Receive Date: 20201203
  Receipt Date: 20201203
  Transmission Date: 20210114
  Serious: Yes (Death, Hospitalization)
  Sender: FDA-Public Use
  Company Number: AU-MYLANLABS-2020M1099166

PATIENT
  Age: 28 Year
  Sex: Male

DRUGS (7)
  1. NOREPINEPHRINE. [Suspect]
     Active Substance: NOREPINEPHRINE
     Indication: ENDOCARDITIS
     Dosage: UNK
     Route: 065
  2. EPINEPHRINE. [Suspect]
     Active Substance: EPINEPHRINE
     Indication: DRUG THERAPY
     Dosage: 0.1 MICROGRAM/KILOGRAM, QMINUTE
     Route: 065
  3. NITRIC OXIDE. [Suspect]
     Active Substance: NITRIC OXIDE
     Indication: DRUG THERAPY
     Dosage: UNK
  4. DOBUTAMINE [Suspect]
     Active Substance: DOBUTAMINE HYDROCHLORIDE
     Indication: ENDOCARDITIS
     Dosage: UNK
     Route: 042
  5. NOREPINEPHRINE. [Suspect]
     Active Substance: NOREPINEPHRINE
     Indication: DRUG THERAPY
     Dosage: 0.1 MICROGRAM/KILOGRAM, QMINUTE
     Route: 065
  6. HEPARIN [Suspect]
     Active Substance: HEPARIN SODIUM
     Indication: ANTICOAGULANT THERAPY
     Dosage: UNK
     Route: 065
  7. VASOPRESSIN. [Suspect]
     Active Substance: VASOPRESSIN
     Indication: DRUG THERAPY
     Dosage: 0.01 UNITS/MIN
     Route: 065

REACTIONS (1)
  - Drug ineffective [Fatal]
